FAERS Safety Report 7296939-2 (Version None)
Quarter: 2011Q1

REPORT INFORMATION
  Report Type: 
  Country: None (occurrence: None)
  Receive Date: 20110216
  Receipt Date: 20110210
  Transmission Date: 20110831
  Serious: Yes (Other)
  Sender: FDA-Public Use
  Company Number: US-JNJFOC-20100805743

PATIENT
  Sex: Female

DRUGS (1)
  1. LEVAQUIN [Suspect]
     Indication: BLADDER NECK SUSPENSION
     Route: 048

REACTIONS (4)
  - TENDON DISORDER [None]
  - TENDONITIS [None]
  - TENOSYNOVITIS STENOSANS [None]
  - TENDON RUPTURE [None]
